FAERS Safety Report 21774382 (Version 2)
Quarter: 2023Q1

REPORT INFORMATION
  Report Type: Spontaneous
  Country: AR (occurrence: AR)
  Receive Date: 20221224
  Receipt Date: 20230123
  Transmission Date: 20230417
  Serious: Yes (Other)
  Sender: FDA-Public Use
  Company Number: AR-OEPI8P-964

PATIENT

DRUGS (4)
  1. NERLYNX [Suspect]
     Active Substance: NERATINIB
     Indication: Breast cancer
     Dosage: 120 MG DAILY DURING THE FIRST WEEK.
     Route: 048
     Dates: start: 20220721
  2. NERLYNX [Suspect]
     Active Substance: NERATINIB
     Dosage: 160 MG DURING THE SECOND WEEK.
     Route: 048
  3. NERLYNX [Suspect]
     Active Substance: NERATINIB
     Dosage: 240 MG FROM THE THIRD WEEK ONWARDS.THERAPY DURATION: ONGOINGTREATMENT WITH NERLYNX WAS DISCON...
     Route: 048
     Dates: end: 202212
  4. CAPECITABINE [Concomitant]
     Active Substance: CAPECITABINE
     Indication: Product used for unknown indication
     Dosage: 2500 MG/DAY
     Route: 048

REACTIONS (2)
  - Disease progression [Unknown]
  - Off label use [Unknown]
